FAERS Safety Report 21508764 (Version 2)
Quarter: 2022Q4

REPORT INFORMATION
  Report Type: Spontaneous
  Country: FR (occurrence: FR)
  Receive Date: 20221026
  Receipt Date: 20221107
  Transmission Date: 20230113
  Serious: Yes (Death, Other)
  Sender: FDA-Public Use
  Company Number: FR-SA-SAC20221026000261

PATIENT
  Age: 7 Month
  Sex: Male

DRUGS (9)
  1. LEVOFLOXACIN [Suspect]
     Active Substance: LEVOFLOXACIN
     Indication: Mycobacterial infection
     Dosage: UNK
  2. RIFAMPIN [Suspect]
     Active Substance: RIFAMPIN
     Indication: Mycobacterial infection
     Dosage: UNK
  3. PYRAZINAMIDE [Suspect]
     Active Substance: PYRAZINAMIDE
     Indication: Mycobacterial infection
     Dosage: UNK
  4. ETHAMBUTOL [Suspect]
     Active Substance: ETHAMBUTOL HYDROCHLORIDE
     Indication: Mycobacterial infection
     Dosage: UNK
  5. MEROPENEM [Concomitant]
     Active Substance: MEROPENEM
     Dosage: UNK
  6. VANCOMYCIN [Concomitant]
     Active Substance: VANCOMYCIN
     Dosage: UNK
  7. COLISTIN [Concomitant]
     Active Substance: COLISTIN
     Dosage: UNK
  8. SULFAMETHOXAZOLE AND TRIMETHOPRIM [Concomitant]
     Active Substance: SULFAMETHOXAZOLE\TRIMETHOPRIM
     Dosage: UNK
  9. AMPHOTERICIN B [Concomitant]
     Active Substance: AMPHOTERICIN B
     Dosage: UNK

REACTIONS (5)
  - Respiratory failure [Fatal]
  - Cerebral calcification [Unknown]
  - Alveolar proteinosis [Unknown]
  - Cerebral ventricle dilatation [Unknown]
  - Cerebellar hypoplasia [Unknown]
